FAERS Safety Report 8465525-0 (Version None)
Quarter: 2012Q2

REPORT INFORMATION
  Report Type: 
  Country: None (occurrence: None)
  Receive Date: 20120626
  Receipt Date: 20120618
  Transmission Date: 20120825
  Serious: Yes (Hospitalization, Other)
  Sender: FDA-Public Use
  Company Number: US-BAYER-2012-062274

PATIENT
  Age: 21 Year
  Sex: Female
  Weight: 58.957 kg

DRUGS (5)
  1. YASMIN [Suspect]
  2. AZITHROMYCIN [Concomitant]
     Dosage: 250 MG, UNK
  3. OXYCODONE HCL AND ACETAMINOPHEN [Concomitant]
     Dosage: 10 MG / 500 MG
  4. AMOXICILLIN [Concomitant]
  5. PROMETHAZINE [Concomitant]
     Dosage: 25 MG, UNK

REACTIONS (3)
  - DEEP VEIN THROMBOSIS [None]
  - PULMONARY INFARCTION [None]
  - PULMONARY EMBOLISM [None]
